FAERS Safety Report 4589594-3 (Version None)
Quarter: 2005Q1

REPORT INFORMATION
  Report Type: 
  Country: None (occurrence: None)
  Receive Date: 20050216
  Receipt Date: 20050202
  Transmission Date: 20050727
  Serious: Yes (Hospitalization, Other)
  Sender: FDA-Public Use
  Company Number: 2004241122DE

PATIENT
  Age: 77 Year
  Sex: Female
  Weight: 82 kg

DRUGS (2)
  1. BEXTRA [Suspect]
     Indication: SPONDYLITIS
     Dosage: 20 MG (20 MG, 1 IN 1 D), ORAL
     Route: 048
     Dates: start: 20040802, end: 20040808
  2. ANTIHYPERTENSIVES (ANTIHYPERTENSIVES) [Concomitant]

REACTIONS (6)
  - GASTRITIS EROSIVE [None]
  - HEPATIC ADENOMA [None]
  - IRON DEFICIENCY ANAEMIA [None]
  - MELAENA [None]
  - POLYP [None]
  - UPPER GASTROINTESTINAL HAEMORRHAGE [None]
